FAERS Safety Report 5501947-5 (Version None)
Quarter: 2007Q4

REPORT INFORMATION
  Report Type: 
  Country: None (occurrence: None)
  Receive Date: 20071030
  Receipt Date: 20071019
  Transmission Date: 20080405
  Serious: Yes (Hospitalization, Other)
  Sender: FDA-Public Use
  Company Number: US-ROCHE-440145

PATIENT
  Age: 44 Year
  Sex: Male
  Weight: 74.8 kg

DRUGS (3)
  1. ACCUTANE [Suspect]
     Indication: ACNE
     Route: 048
     Dates: start: 19880101, end: 19880601
  2. SOMA COMPOUND [Concomitant]
     Dosage: REPORTED AS: ONE EVERY 4 PRN.
     Route: 048
     Dates: start: 19880516
  3. ANAPROX [Concomitant]
     Dosage: STRENGTH/FORMULATION REPORTED AS: DS
     Route: 048
     Dates: start: 19880516

REACTIONS (12)
  - BRACHIAL PLEXUS INJURY [None]
  - COLITIS ULCERATIVE [None]
  - CROHN'S DISEASE [None]
  - DEEP VEIN THROMBOSIS [None]
  - FUNGAL SKIN INFECTION [None]
  - HERPES ZOSTER [None]
  - IRON DEFICIENCY ANAEMIA [None]
  - NEPHROLITHIASIS [None]
  - PANCREATITIS [None]
  - POST HERPETIC NEURALGIA [None]
  - PULMONARY EMBOLISM [None]
  - THROMBOCYTHAEMIA [None]
